FAERS Safety Report 6067887-0 (Version None)
Quarter: 2009Q1

REPORT INFORMATION
  Report Type: 
  Country: None (occurrence: None)
  Receive Date: 20090203
  Receipt Date: 20090119
  Transmission Date: 20090719
  Serious: Yes (Death)
  Sender: FDA-Public Use
  Company Number: 08-231

PATIENT
  Age: 98 Year
  Sex: Male
  Weight: 47.5 kg

DRUGS (14)
  1. FAZACLO ODT [Suspect]
     Indication: DEMENTIA
     Dosage: 37.5 MG PO QHS
     Route: 048
     Dates: start: 20080101, end: 20081126
  2. FAZACLO ODT [Suspect]
     Indication: DEPRESSION
     Dosage: 37.5 MG PO QHS
     Route: 048
     Dates: start: 20080101, end: 20081126
  3. FAZACLO ODT [Suspect]
     Indication: PSYCHOTIC DISORDER
     Dosage: 37.5 MG PO QHS
     Route: 048
     Dates: start: 20080101, end: 20081126
  4. IPRATROPIUM/ALBUTEROL INHALATION [Concomitant]
  5. LEVAQUIN [Concomitant]
  6. BISACODYL 5 MG TABLET [Concomitant]
  7. BISACODYL 10 MG SUPPOSITORY [Concomitant]
  8. MEGESTROL ACETATE [Concomitant]
  9. METOPROLOL TARTRATE [Concomitant]
  10. LEXAPRO [Concomitant]
  11. DOXYCYCLINE [Concomitant]
  12. OMEPRAZOLE [Concomitant]
  13. HALOPERIDOL [Concomitant]
  14. TRAZODONE HCL [Concomitant]

REACTIONS (1)
  - PNEUMONIA [None]
